FAERS Safety Report 7666810-2 (Version None)
Quarter: 2011Q3

REPORT INFORMATION
  Report Type: 
  Country: None (occurrence: None)
  Receive Date: 20110806
  Receipt Date: 20110531
  Transmission Date: 20111222
  Serious: No
  Sender: FDA-Public Use
  Company Number: US-ABBOTT-11P-163-0730018-00

PATIENT
  Sex: Male
  Weight: 88.076 kg

DRUGS (9)
  1. COUMADIN [Concomitant]
     Indication: THROMBOSIS PROPHYLAXIS
  2. NORVASC [Concomitant]
     Indication: HYPERTENSION
  3. GLUCOSAMINE CHONDROITIN [Concomitant]
     Indication: SUPPLEMENTATION THERAPY
  4. HYDROCHLOROTHIAZIDE [Concomitant]
     Indication: FLUID RETENTION
  5. NIASPAN [Suspect]
     Indication: BLOOD CHOLESTEROL INCREASED
     Dates: start: 20110528
  6. LOVAZA [Concomitant]
     Indication: BLOOD CHOLESTEROL INCREASED
  7. PLAVIX [Concomitant]
     Indication: THROMBOSIS PROPHYLAXIS
  8. ZETIA [Concomitant]
     Indication: BLOOD CHOLESTEROL INCREASED
  9. TOPROL-XL [Concomitant]
     Indication: HYPERTENSION

REACTIONS (1)
  - FLUSHING [None]
